FAERS Safety Report 22015498 (Version 2)
Quarter: 2024Q2

REPORT INFORMATION
  Report Type: Spontaneous
  Country: US (occurrence: US)
  Receive Date: 20230221
  Receipt Date: 20240604
  Transmission Date: 20240716
  Serious: Yes (Hospitalization, Other)
  Sender: FDA-Public Use
  Company Number: US-AUROBINDO-AUR-APL-2023-007953

PATIENT
  Age: 57 Year
  Sex: Male

DRUGS (8)
  1. FLUOROURACIL [Suspect]
     Active Substance: FLUOROURACIL
     Indication: Oesophageal adenocarcinoma stage IV
     Dosage: CYCLICAL, EVERY 2 WEEKS, FOLFOX REGIMEN, 4 CYCLES
     Route: 065
  2. FLUOROURACIL [Suspect]
     Active Substance: FLUOROURACIL
     Dosage: ANOTHER CYCLE
     Route: 065
  3. OXALIPLATIN [Suspect]
     Active Substance: OXALIPLATIN
     Indication: Oesophageal adenocarcinoma stage IV
     Dosage: CYCLICAL, EVERY 2 WEEKS, FOLFOX REGIMEN, 4 CYCLES
     Route: 065
  4. OXALIPLATIN [Suspect]
     Active Substance: OXALIPLATIN
     Dosage: ANOTHER CYCLE
     Route: 065
  5. LEUCOVORIN [Concomitant]
     Active Substance: LEUCOVORIN\LEUCOVORIN CALCIUM
     Indication: Oesophageal adenocarcinoma stage IV
     Dosage: CYCLICAL, EVERY 2 WEEKS, FOLFOX REGIMEN, 4 CYCLES
     Route: 065
  6. LEUCOVORIN [Concomitant]
     Active Substance: LEUCOVORIN\LEUCOVORIN CALCIUM
     Dosage: ANOTHER CYCLE
     Route: 065
  7. NIVOLUMAB [Suspect]
     Active Substance: NIVOLUMAB
     Indication: Oesophageal adenocarcinoma stage IV
     Dosage: CYCLICAL, EVERY 2 WEEKS
     Route: 065
  8. PREDNISONE [Concomitant]
     Active Substance: PREDNISONE
     Indication: Product used for unknown indication
     Route: 065

REACTIONS (1)
  - Toxic epidermal necrolysis [Unknown]
